FAERS Safety Report 10540112 (Version 1)
Quarter: 2014Q4

REPORT INFORMATION
  Report Type: Spontaneous
  Country: IT (occurrence: IT)
  Receive Date: 20141024
  Receipt Date: 20141024
  Transmission Date: 20150529
  Serious: Yes (Hospitalization)
  Sender: FDA-Public Use
  Company Number: IT-ELI_LILLY_AND_COMPANY-IT201410004698

PATIENT
  Age: 83 Year
  Sex: Male

DRUGS (4)
  1. CYMBALTA [Suspect]
     Active Substance: DULOXETINE HYDROCHLORIDE
     Indication: DEPRESSION
     Dosage: 1 DF, QD
     Route: 048
     Dates: start: 20140901, end: 20140922
  2. CORDARONE [Concomitant]
     Active Substance: AMIODARONE HYDROCHLORIDE
     Dosage: 1 DF, UNKNOWN
     Route: 048
  3. TAMSULOSIN                         /01280302/ [Concomitant]
     Dosage: 1 DF, UNKNOWN
     Route: 048
  4. FLUIMICIL [Concomitant]
     Dosage: UNK, UNKNOWN
     Route: 048

REACTIONS (5)
  - Dysarthria [Unknown]
  - Asthenia [Unknown]
  - Psychomotor retardation [Unknown]
  - Hyponatraemia [Unknown]
  - Vertigo [Unknown]

NARRATIVE: CASE EVENT DATE: 20140922
